FAERS Safety Report 13110673 (Version 2)
Quarter: 2017Q1

REPORT INFORMATION
  Report Type: Report from Study
  Country: CA (occurrence: CA)
  Receive Date: 20170112
  Receipt Date: 20170119
  Transmission Date: 20170428
  Serious: Yes (Other)
  Sender: FDA-Public Use
  Company Number: CA-JNJFOC-20161220012

PATIENT
  Age: 34 Year
  Sex: Female
  Weight: 81.65 kg

DRUGS (2)
  1. STELARA [Suspect]
     Active Substance: USTEKINUMAB
     Indication: CROHN^S DISEASE
     Route: 058
  2. STELARA [Suspect]
     Active Substance: USTEKINUMAB
     Indication: CROHN^S DISEASE
     Route: 058
     Dates: start: 20151212

REACTIONS (6)
  - Nasopharyngitis [Not Recovered/Not Resolved]
  - Herpes zoster [Recovered/Resolved]
  - Pneumonia [Unknown]
  - Off label use [Unknown]
  - Lower respiratory tract infection [Unknown]
  - Product use issue [Unknown]

NARRATIVE: CASE EVENT DATE: 20151212
